FAERS Safety Report 5479880-7 (Version None)
Quarter: 2007Q4

REPORT INFORMATION
  Report Type: 
  Country: None (occurrence: None)
  Receive Date: 20071008
  Receipt Date: 20071001
  Transmission Date: 20080405
  Serious: Yes (Life-Threatening, Hospitalization)
  Sender: FDA-Public Use
  Company Number: GB-ROXANE LABORATORIES, INC-2007-BP-22240RO

PATIENT
  Age: 26 Year
  Sex: Female

DRUGS (7)
  1. CYCLOPHOSPHAMIDE [Suspect]
     Indication: SYSTEMIC LUPUS ERYTHEMATOSUS
  2. CYCLOPHOSPHAMIDE [Suspect]
  3. RITUXIMAB [Suspect]
     Indication: SYSTEMIC LUPUS ERYTHEMATOSUS
  4. DMARDS [Suspect]
     Indication: SYSTEMIC LUPUS ERYTHEMATOSUS
  5. STEROIDS [Suspect]
     Indication: SYSTEMIC LUPUS ERYTHEMATOSUS
     Route: 042
  6. STEROIDS [Suspect]
     Route: 048
  7. IMMUNE GLOBULIN INTRAVENOUS (HUMAN) [Suspect]
     Indication: SYSTEMIC LUPUS ERYTHEMATOSUS
     Route: 042

REACTIONS (6)
  - B-LYMPHOCYTE COUNT DECREASED [None]
  - CEREBRAL HAEMORRHAGE [None]
  - DRUG INEFFECTIVE [None]
  - ONYCHOLYSIS [None]
  - PSORIASIS [None]
  - THROMBOCYTOPENIA [None]
